FAERS Safety Report 8522517-0 (Version None)
Quarter: 2012Q3

REPORT INFORMATION
  Report Type: 
  Country: None (occurrence: None)
  Receive Date: 20120719
  Receipt Date: 20120606
  Transmission Date: 20120928
  Serious: No
  Sender: FDA-Public Use
  Company Number: US-ASTRAZENECA-2012SE38335

PATIENT
  Age: 74 Year
  Sex: Female
  Weight: 74.8 kg

DRUGS (3)
  1. NEXIUM [Suspect]
     Indication: ABDOMINAL PAIN UPPER
     Route: 048
  2. STEROID [Concomitant]
  3. THYROID MEDICATIONS [Concomitant]

REACTIONS (2)
  - INCONTINENCE [None]
  - OFF LABEL USE [None]
